FAERS Safety Report 9278858 (Version 5)
Quarter: 2016Q3

REPORT INFORMATION
  Report Type: Spontaneous
  Country: DK (occurrence: DK)
  Receive Date: 20130508
  Receipt Date: 20160706
  Transmission Date: 20161109
  Serious: Yes (Life-Threatening, Hospitalization, Disabling)
  Sender: FDA-Public Use
  Company Number: PHHY2013DK045047

PATIENT
  Age: 19 Year
  Sex: Female
  Weight: 55 kg

DRUGS (1)
  1. LINDYNETTE [Suspect]
     Active Substance: ETHINYL ESTRADIOL\GESTODENE
     Indication: CONTRACEPTION
     Dosage: 1 DF, QD
     Route: 048
     Dates: end: 20100531

REACTIONS (13)
  - Localised infection [Recovering/Resolving]
  - Escherichia urinary tract infection [Recovering/Resolving]
  - Discomfort [Recovering/Resolving]
  - Deep vein thrombosis [Recovering/Resolving]
  - Hypokinesia [Recovering/Resolving]
  - Jugular vein thrombosis [Recovering/Resolving]
  - Central nervous system infection [Recovering/Resolving]
  - Muscle spasms [Recovering/Resolving]
  - Transverse sinus thrombosis [Recovering/Resolving]
  - Cerebral artery embolism [Recovering/Resolving]
  - Oedema peripheral [Recovering/Resolving]
  - Thrombosis [Recovering/Resolving]
  - Brain injury [Recovering/Resolving]

NARRATIVE: CASE EVENT DATE: 20100531
